FAERS Safety Report 6530951-3 (Version None)
Quarter: 2010Q1

REPORT INFORMATION
  Report Type: 
  Country: None (occurrence: None)
  Receive Date: 20100108
  Receipt Date: 20091103
  Transmission Date: 20100710
  Serious: Yes (Other)
  Sender: FDA-Public Use
  Company Number: A0795906A

PATIENT
  Age: 63 Year
  Sex: Female
  Weight: 65.5 kg

DRUGS (6)
  1. LOVAZA [Suspect]
     Indication: BLOOD CHOLESTEROL INCREASED
     Dosage: 1CAP TWICE PER DAY
     Route: 048
     Dates: start: 20060101
  2. CRESTOR [Concomitant]
  3. DIOVAN [Concomitant]
  4. PREMPRO [Concomitant]
  5. CALCIUM [Concomitant]
  6. VITAMIN B12 COMPLEX [Concomitant]

REACTIONS (3)
  - ALANINE AMINOTRANSFERASE INCREASED [None]
  - ASPARTATE AMINOTRANSFERASE INCREASED [None]
  - HEPATIC ENZYME INCREASED [None]
